FAERS Safety Report 6384296-5 (Version None)
Quarter: 2009Q4

REPORT INFORMATION
  Report Type: 
  Country: None (occurrence: None)
  Receive Date: 20091001
  Receipt Date: 20090818
  Transmission Date: 20100525
  Serious: Yes (Other)
  Sender: FDA-Public Use
  Company Number: NL-MERCK-0908NLD00007

PATIENT
  Age: 35 Year
  Sex: Female

DRUGS (3)
  1. ZETIA [Suspect]
     Route: 048
     Dates: start: 20040101
  2. ATORVASTATIN CALCIUM [Concomitant]
     Route: 048
     Dates: start: 20040101
  3. LEVOTHYROXINE SODIUM [Concomitant]
     Route: 048
     Dates: start: 19940101

REACTIONS (1)
  - ABORTION SPONTANEOUS [None]
